FAERS Safety Report 22521842 (Version 1)
Quarter: 2023Q2

REPORT INFORMATION
  Report Type: Spontaneous
  Country: US (occurrence: US)
  Receive Date: 20230605
  Receipt Date: 20230605
  Transmission Date: 20230722
  Serious: Yes (Other)
  Sender: FDA-Public Use
  Company Number: US-002147023-NVSC2023US126652

PATIENT
  Age: 52 Year
  Sex: Female
  Weight: 46.7 kg

DRUGS (5)
  1. AZITHROMYCIN [Suspect]
     Active Substance: AZITHROMYCIN
     Indication: Mycobacterial infection
     Dosage: 500 MG, QD
     Route: 065
     Dates: start: 20221108, end: 20230228
  2. MOXIFLOXACIN [Suspect]
     Active Substance: MOXIFLOXACIN
     Indication: Mycobacterial infection
     Dosage: 400 MG, QD
     Route: 065
     Dates: start: 20221220, end: 20230228
  3. ETHAMBUTOL [Suspect]
     Active Substance: ETHAMBUTOL HYDROCHLORIDE
     Indication: Mycobacterial infection
     Dosage: 800 MG, QD
     Route: 065
     Dates: start: 20221108, end: 20230228
  4. RIFAMPIN [Suspect]
     Active Substance: RIFAMPIN
     Indication: Mycobacterial infection
     Dosage: 600 MG
     Route: 065
     Dates: start: 20221108, end: 20230228
  5. AMIKACIN [Suspect]
     Active Substance: AMIKACIN
     Indication: Mycobacterial infection
     Dosage: 15-25 MG/KG (500MG), Q3W
     Route: 042
     Dates: end: 20230228

REACTIONS (1)
  - Mycobacterium avium complex infection [Not Recovered/Not Resolved]
